FAERS Safety Report 12811249 (Version 1)
Quarter: 2016Q4

REPORT INFORMATION
  Report Type: Spontaneous
  Country: US (occurrence: US)
  Receive Date: 20161004
  Receipt Date: 20161004
  Transmission Date: 20170207
  Serious: No
  Sender: FDA-Public Use
  Company Number: None

PATIENT
  Age: 60 Year
  Sex: Female
  Weight: 54.9 kg

DRUGS (1)
  1. HYOSCYAMINE SULFATE VIRTUS [Suspect]
     Active Substance: HYOSCYAMINE SULFATE
     Indication: OESOPHAGEAL SPASM
     Dosage: ?          QUANTITY:1 TABLET(S);?
     Route: 060
     Dates: start: 20160915, end: 20161002

REACTIONS (3)
  - Hot flush [None]
  - Photophobia [None]
  - Dizziness [None]

NARRATIVE: CASE EVENT DATE: 20160923
